FAERS Safety Report 4333844-5 (Version None)
Quarter: 2004Q2

REPORT INFORMATION
  Report Type: 
  Country: None (occurrence: None)
  Receive Date: 20040402
  Receipt Date: 20040325
  Transmission Date: 20050107
  Serious: Yes (Death)
  Sender: FDA-Public Use
  Company Number: US-SHR-03-17899

PATIENT
  Age: 62 Year
  Sex: Male
  Weight: 124.7 kg

DRUGS (10)
  1. ULTRAVIST PHARMACY BULK (300MG/ML)(IOPROMIDE) INJECTION [Suspect]
     Indication: COMPUTERISED TOMOGRAM
     Dosage: 87 ML, 1 DOSE, INTRAVENOUS
     Route: 042
     Dates: start: 20031124, end: 20031124
  2. GLUCOTROL [Concomitant]
  3. COUMADIN [Concomitant]
  4. DESYREL [Concomitant]
  5. ZESTRIL [Concomitant]
  6. LANTUS [Concomitant]
  7. BENADRYL ^PFIZER WARNER-LAMBERT^ (DIPHENHYDRAMINE HYDROCHLORIDE) [Concomitant]
  8. COMBIVENT /GFR/ (IPRATROPIUM BROMIDE) [Concomitant]
  9. ADVAIR DISKUS [Concomitant]
  10. TYLENOL (CAPLET) [Concomitant]

REACTIONS (2)
  - CARDIO-RESPIRATORY ARREST [None]
  - LARYNGOSPASM [None]
